FAERS Safety Report 12379555 (Version 2)
Quarter: 2016Q2

REPORT INFORMATION
  Report Type: Spontaneous
  Country: FR (occurrence: FR)
  Receive Date: 20160517
  Receipt Date: 20160525
  Transmission Date: 20160815
  Serious: Yes (Other)
  Sender: FDA-Public Use
  Company Number: PHHY2016FR065352

PATIENT
  Age: 91 Year
  Sex: Female

DRUGS (1)
  1. DIGOXIN. [Suspect]
     Active Substance: DIGOXIN
     Indication: ATRIAL FIBRILLATION
     Dosage: UNK
     Route: 065

REACTIONS (13)
  - Rash [Recovered/Resolved]
  - Vomiting [Unknown]
  - Overdose [Unknown]
  - Rash maculo-papular [Recovered/Resolved]
  - Purpura [Recovered/Resolved]
  - Pruritus [Recovered/Resolved]
  - Dermatitis bullous [Recovered/Resolved]
  - Skin ulcer [Recovered/Resolved]
  - Excoriation [Recovered/Resolved]
  - Hypersensitivity vasculitis [Recovered/Resolved]
  - Skin necrosis [Recovered/Resolved]
  - Lymphoedema [Recovered/Resolved]
  - Nausea [Unknown]
